FAERS Safety Report 7872145-5 (Version None)
Quarter: 2011Q4

REPORT INFORMATION
  Report Type: 
  Country: None (occurrence: None)
  Receive Date: 20111029
  Receipt Date: 20110315
  Transmission Date: 20120403
  Serious: No
  Sender: FDA-Public Use
  Company Number: US-AMGEN-USASP2011014203

PATIENT
  Sex: Female
  Weight: 86.168 kg

DRUGS (9)
  1. PREDNISONE [Concomitant]
     Dosage: 5 MG, UNK
  2. AMBIEN [Concomitant]
     Dosage: 10 MG, UNK
  3. PAXIL [Concomitant]
     Dosage: 30 MG, UNK
  4. GABAPENTIN [Concomitant]
     Dosage: 300 MG, UNK
  5. LEFLUNOMIDE [Concomitant]
     Dosage: 20 MG, UNK
  6. FOLIC ACID [Concomitant]
     Dosage: 1 UNK, UNK
  7. ENBREL [Suspect]
     Indication: PRODUCT USED FOR UNKNOWN INDICATION
     Dosage: 50 MG, QWK
  8. OMEPRAZOLE [Concomitant]
     Dosage: 20 MG, UNK
  9. AMITRIPTYLINE HCL [Concomitant]
     Dosage: 25 MG, UNK

REACTIONS (4)
  - SINUSITIS [None]
  - LOWER RESPIRATORY TRACT INFECTION [None]
  - BRONCHITIS [None]
  - IMMUNE SYSTEM DISORDER [None]
